FAERS Safety Report 4376162-1 (Version None)
Quarter: 2004Q2

REPORT INFORMATION
  Report Type: 
  Country: None (occurrence: None)
  Receive Date: 20040609
  Receipt Date: 20040609
  Transmission Date: 20050107
  Serious: No
  Sender: FDA-Public Use
  Company Number: None

PATIENT
  Age: 42 Year
  Sex: Female
  Weight: 59 kg

DRUGS (1)
  1. DICLOFENAC 50 MG GENEVA [Suspect]
     Indication: ARTHRITIS
     Dosage: 50 MG PO BID
     Route: 048
     Dates: start: 20031103, end: 20040209

REACTIONS (1)
  - HEPATIC ENZYME INCREASED [None]
